FAERS Safety Report 7786838-1 (Version None)
Quarter: 2011Q3

REPORT INFORMATION
  Report Type: 
  Country: None (occurrence: None)
  Receive Date: 20110929
  Receipt Date: 20110922
  Transmission Date: 20111222
  Serious: Yes (Other)
  Sender: FDA-Public Use
  Company Number: JP-PFIZER INC-2011225971

PATIENT
  Age: 52 Year
  Sex: Female

DRUGS (1)
  1. CELECOXIB [Suspect]
     Indication: SPINAL OSTEOARTHRITIS
     Dosage: 100 MG, 2X/DAY
     Route: 048
     Dates: start: 20110818, end: 20110818

REACTIONS (5)
  - ORAL PAIN [None]
  - OLIGURIA [None]
  - THIRST [None]
  - HOT FLUSH [None]
  - HYPERHIDROSIS [None]
